FAERS Safety Report 17416742 (Version 1)
Quarter: 2020Q1

REPORT INFORMATION
  Report Type: Spontaneous
  Country: US (occurrence: US)
  Receive Date: 20200214
  Receipt Date: 20200214
  Transmission Date: 20200409
  Serious: No
  Sender: FDA-Public Use
  Company Number: US-SA-2020SA017330

PATIENT
  Age: 44 Year
  Sex: Male

DRUGS (2)
  1. DUPIXENT [Suspect]
     Active Substance: DUPILUMAB
     Indication: DERMATITIS
     Dosage: 300 MG, QOW
     Route: 058
     Dates: start: 201910
  2. MULTIVITAMINS [VITAMINS NOS] [Concomitant]
     Active Substance: VITAMINS

REACTIONS (1)
  - Knee operation [Recovering/Resolving]

NARRATIVE: CASE EVENT DATE: 20200207
